FAERS Safety Report 8823400 (Version 1)
Quarter: 2012Q4

REPORT INFORMATION
  Report Type: 
  Country: US (occurrence: US)
  Receive Date: 20121003
  Receipt Date: 20121003
  Transmission Date: 20130627
  Serious: Yes (Hospitalization)
  Sender: FDA-Public Use
  Company Number: US-009507513-1210USA000624

PATIENT
  Age: 48 Year
  Sex: Male

DRUGS (11)
  1. JANUVIA [Suspect]
     Route: 048
  2. VICTOZA [Suspect]
     Dosage: 0.6 mg, qd
     Route: 058
  3. VICTOZA [Suspect]
     Dosage: 1.2 mg, qd
     Route: 058
  4. VICTOZA [Suspect]
     Dosage: 1.2 DF, qd
  5. LORTAB [Concomitant]
  6. NEXIUM [Concomitant]
  7. ASPIRIN [Concomitant]
  8. CYANOCOBALAMIN [Concomitant]
  9. AMARYL [Concomitant]
  10. JANUMET [Concomitant]
  11. LISINOPRIL [Concomitant]

REACTIONS (2)
  - Ileus [Unknown]
  - Pancreatitis [Unknown]
